FAERS Safety Report 5477933-0 (Version None)
Quarter: 2007Q4

REPORT INFORMATION
  Report Type: 
  Country: None (occurrence: None)
  Receive Date: 20071005
  Receipt Date: 20071002
  Transmission Date: 20080405
  Serious: Yes (Death, Other)
  Sender: FDA-Public Use
  Company Number: PHBS2007JP16382

PATIENT
  Age: 44 Year
  Sex: Male

DRUGS (5)
  1. METHOTREXATE [Suspect]
     Indication: BONE MARROW TRANSPLANT
  2. PREDNISONE [Suspect]
     Indication: BONE MARROW TRANSPLANT
  3. CYCLOPHOSPHAMIDE [Suspect]
     Indication: BONE MARROW TRANSPLANT
     Dosage: 120 MG/KG
     Route: 042
     Dates: start: 20040201
  4. IRRADIATION [Suspect]
     Indication: BONE MARROW TRANSPLANT
  5. CICLOSPORIN [Suspect]
     Indication: BONE MARROW TRANSPLANT
     Route: 065
     Dates: start: 20040201

REACTIONS (5)
  - ADULT T-CELL LYMPHOMA/LEUKAEMIA [None]
  - GRAFT VERSUS HOST DISEASE [None]
  - PYREXIA [None]
  - T-LYMPHOCYTE COUNT INCREASED [None]
  - WHITE BLOOD CELL COUNT INCREASED [None]
